FAERS Safety Report 22166959 (Version 1)
Quarter: 2023Q2

REPORT INFORMATION
  Report Type: Spontaneous
  Country: CN (occurrence: CN)
  Receive Date: 20230403
  Receipt Date: 20230403
  Transmission Date: 20230722
  Serious: Yes (Other)
  Sender: FDA-Public Use
  Company Number: CN-OTSUKA-2023_008111

PATIENT
  Age: 59 Year
  Sex: Female

DRUGS (10)
  1. DECITABINE [Suspect]
     Active Substance: DECITABINE
     Indication: Acute leukaemia
     Dosage: UNK
     Route: 065
  2. DECITABINE [Suspect]
     Active Substance: DECITABINE
     Indication: Chemotherapy
  3. IDARUBICIN [Suspect]
     Active Substance: IDARUBICIN
     Indication: Acute leukaemia
     Dosage: UNK
     Route: 065
  4. IDARUBICIN [Suspect]
     Active Substance: IDARUBICIN
     Indication: Chemotherapy
  5. VINDESINE SULFATE [Suspect]
     Active Substance: VINDESINE SULFATE
     Indication: Acute leukaemia
     Dosage: UNK
     Route: 065
  6. VINDESINE SULFATE [Suspect]
     Active Substance: VINDESINE SULFATE
     Indication: Chemotherapy
  7. PREDNISONE [Suspect]
     Active Substance: PREDNISONE
     Indication: Acute leukaemia
     Dosage: UNK
     Route: 065
  8. PREDNISONE [Suspect]
     Active Substance: PREDNISONE
     Indication: Chemotherapy
  9. CYTARABINE [Suspect]
     Active Substance: CYTARABINE
     Indication: Acute leukaemia
     Dosage: UNK
     Route: 065
  10. CYTARABINE [Suspect]
     Active Substance: CYTARABINE
     Indication: Chemotherapy

REACTIONS (8)
  - Cytokine storm [Unknown]
  - Loss of consciousness [Recovering/Resolving]
  - Agranulocytosis [Unknown]
  - Respiratory failure [Unknown]
  - Acinetobacter infection [Unknown]
  - Pseudomonas infection [Unknown]
  - Septic shock [Unknown]
  - Product use in unapproved indication [Unknown]
